FAERS Safety Report 8557517-8 (Version None)
Quarter: 2012Q3

REPORT INFORMATION
  Report Type: 
  Country: None (occurrence: None)
  Receive Date: 20120801
  Receipt Date: 20110107
  Transmission Date: 20120928
  Serious: No
  Sender: FDA-Public Use
  Company Number: US-BAYER-2011-003868

PATIENT
  Age: 50 Year
  Sex: Male
  Weight: 210 kg

DRUGS (4)
  1. VOLUVEN [Concomitant]
  2. ULTRAVIST 150 [Suspect]
     Indication: COMPUTERISED TOMOGRAM ABDOMEN
     Dosage: 143 ML, ONCE
     Route: 042
     Dates: start: 20110107, end: 20110107
  3. ULTRAVIST 150 [Suspect]
     Indication: DIVERTICULITIS
  4. PROZAC [Concomitant]
     Dosage: 10 MG, QD

REACTIONS (3)
  - SNEEZING [None]
  - PRURITUS [None]
  - URTICARIA [None]
